FAERS Safety Report 9744161 (Version 3)
Quarter: 2014Q1

REPORT INFORMATION
  Report Type: Report from Study
  Country: US (occurrence: US)
  Receive Date: 20131210
  Receipt Date: 20140128
  Transmission Date: 20141002
  Serious: Yes (Death, Hospitalization)
  Sender: FDA-Public Use
  Company Number: US-DENDREON CORPORATION-2013PROUSA03348

PATIENT
  Age: 76 Year
  Sex: Male
  Weight: 102.49 kg

DRUGS (19)
  1. SIPULEUCEL-T [Suspect]
     Indication: PROSTATE CANCER METASTATIC
     Dosage: 250 ML, SINGLE
     Route: 042
     Dates: start: 20111208, end: 20111208
  2. SIPULEUCEL-T [Suspect]
     Dosage: 250 ML, SINGLE
     Route: 042
     Dates: start: 20111222, end: 20111222
  3. SIPULEUCEL-T [Suspect]
     Dosage: 250 ML, SINGLE
     Route: 042
     Dates: start: 20120112, end: 20120112
  4. ACIDOPHILUS [Concomitant]
     Indication: SUPPLEMENTATION THERAPY
     Dosage: 1 TABLETS, UNK
  5. CALTRATE + D [Concomitant]
     Indication: SUPPLEMENTATION THERAPY
  6. CRESTOR [Concomitant]
     Indication: HYPERCHOLESTEROLAEMIA
     Dosage: 10 MG, UNK
  7. FLUOCINOLONE ACETONIDE [Concomitant]
     Indication: DERMATITIS
     Dosage: 0.01 %, PRN
  8. GLIPIZIDE XL [Concomitant]
     Indication: DIABETES MELLITUS
     Dosage: 5 MG, QD
  9. HYDROCHLOROTHIAZIDE [Concomitant]
     Indication: BLOOD PRESSURE INCREASED
     Dosage: 50 MG, UNK
  10. KLOR-CON M10 [Concomitant]
     Dosage: 10 MEQ, QD
  11. KOMBIGLYZE [Concomitant]
     Indication: DIABETES MELLITUS
     Dosage: 100 MG, QD
  12. LISINOPRIL [Concomitant]
     Indication: HYPERTENSION
     Dosage: 20 MG, QD
  13. LOVAZA [Concomitant]
     Indication: HYPERCHOLESTEROLAEMIA
     Dosage: 2 G, QD
  14. MAGNESIUM [Concomitant]
     Indication: MINERAL SUPPLEMENTATION
     Dosage: 500 MG, BID
  15. MEGESTROL ACETATE [Concomitant]
     Indication: DECREASED APPETITE
     Dosage: 20 MG, QD
  16. VITAMIN B COMPLEX [Concomitant]
     Indication: VITAMIN SUPPLEMENTATION
     Dosage: UNK, QD
  17. VITAMIN D [Concomitant]
     Indication: VITAMIN SUPPLEMENTATION
     Dosage: UNK, QD
  18. MULTIPLE VITAMINS [Concomitant]
     Indication: VITAMIN SUPPLEMENTATION
     Dosage: UNK, QD
  19. ABIRATERONE ACETATE [Concomitant]
     Indication: PROSTATE CANCER METASTATIC
     Dosage: UNK
     Dates: start: 20130124

REACTIONS (2)
  - Confusional state [Recovered/Resolved]
  - Sleep apnoea syndrome [Recovered/Resolved]
